FAERS Safety Report 14082393 (Version 1)
Quarter: 2017Q4

REPORT INFORMATION
  Report Type: Spontaneous
  Country: US (occurrence: US)
  Receive Date: 20171013
  Receipt Date: 20171013
  Transmission Date: 20180321
  Serious: No
  Sender: FDA-Public Use
  Company Number: US-GLAXOSMITHKLINE-US2017GSK155534

PATIENT
  Age: 79 Year
  Sex: Female

DRUGS (14)
  1. ATENOLOL. [Concomitant]
     Active Substance: ATENOLOL
  2. VITAMIN D2 [Concomitant]
     Active Substance: ERGOCALCIFEROL
  3. DULOXETINE. [Concomitant]
     Active Substance: DULOXETINE
  4. IRON SUPPLEMENT [Concomitant]
     Active Substance: IRON
  5. FLUTICASONE NASAL SPRAY [Concomitant]
     Active Substance: FLUTICASONE
  6. SYMBICORT [Concomitant]
     Active Substance: BUDESONIDE\FORMOTEROL FUMARATE DIHYDRATE
  7. DICYCLOMINE [Concomitant]
     Active Substance: DICYCLOMINE HYDROCHLORIDE
  8. VITAMIN B12 [Concomitant]
     Active Substance: CYANOCOBALAMIN
  9. TEMAZEPAM. [Concomitant]
     Active Substance: TEMAZEPAM
  10. LOPERAMIDE [Concomitant]
     Active Substance: LOPERAMIDE
  11. CALCIUM [Concomitant]
     Active Substance: CALCIUM
  12. VENTOLIN HFA [Suspect]
     Active Substance: ALBUTEROL SULFATE
     Indication: ASTHMA
     Dosage: 2 PUFF(S), PRN
     Route: 055
  13. FENOFIBRATE. [Concomitant]
     Active Substance: FENOFIBRATE
  14. HYDROCORTISONE. [Concomitant]
     Active Substance: HYDROCORTISONE

REACTIONS (4)
  - Wrong technique in device usage process [Unknown]
  - Wrong technique in product usage process [Unknown]
  - Pain [Recovered/Resolved]
  - Neck surgery [Recovered/Resolved]

NARRATIVE: CASE EVENT DATE: 20170908
